FAERS Safety Report 9051952 (Version 3)
Quarter: 2014Q1

REPORT INFORMATION
  Report Type: Report from Study
  Country: CA (occurrence: CA)
  Receive Date: 20130207
  Receipt Date: 20140210
  Transmission Date: 20141002
  Serious: Yes (Hospitalization, Other)
  Sender: FDA-Public Use
  Company Number: CA-JNJFOC-20130115816

PATIENT
  Age: 40 Year
  Sex: Male
  Weight: 131 kg

DRUGS (8)
  1. REMICADE [Suspect]
     Indication: ANKYLOSING SPONDYLITIS
     Route: 042
     Dates: start: 20070223
  2. GENTAMICIN [Suspect]
     Indication: PRODUCT USED FOR UNKNOWN INDICATION
     Route: 065
     Dates: start: 2011
  3. CYMBALTA [Concomitant]
     Route: 065
  4. NORVASC [Concomitant]
     Route: 065
  5. GLUCOSEAMINE SULPHATE [Concomitant]
     Route: 065
  6. VALACYCLOVIR [Concomitant]
     Route: 065
  7. NAPROSYN [Concomitant]
     Route: 065
  8. LABETALOL [Concomitant]
     Route: 065

REACTIONS (7)
  - Renal impairment [Recovering/Resolving]
  - Gastroenteritis viral [Recovered/Resolved]
  - Renal failure [Not Recovered/Not Resolved]
  - Blood pressure increased [Not Recovered/Not Resolved]
  - Renal pain [Not Recovered/Not Resolved]
  - Blood calcium increased [Not Recovered/Not Resolved]
  - Vision blurred [Not Recovered/Not Resolved]
